FAERS Safety Report 6707661-2 (Version None)
Quarter: 2010Q2

REPORT INFORMATION
  Report Type: 
  Country: None (occurrence: None)
  Receive Date: 20100503
  Receipt Date: 20090603
  Transmission Date: 20101027
  Serious: No
  Sender: FDA-Public Use
  Company Number: US-ASTRAZENECA-2009UW14193

PATIENT
  Sex: Female

DRUGS (3)
  1. NEXIUM [Suspect]
     Indication: GASTRITIS
     Route: 048
  2. XANAX [Concomitant]
     Indication: ANXIETY
  3. MIRALAX [Concomitant]
     Indication: INTESTINAL FUNCTIONAL DISORDER

REACTIONS (4)
  - ABDOMINAL DISCOMFORT [None]
  - GASTROINTESTINAL DISORDER [None]
  - STRESS [None]
  - WEIGHT DECREASED [None]
